FAERS Safety Report 25885816 (Version 2)
Quarter: 2025Q4

REPORT INFORMATION
  Report Type: Spontaneous
  Country: US (occurrence: US)
  Receive Date: 20251006
  Receipt Date: 20251009
  Transmission Date: 20260119
  Serious: No
  Sender: APELLIS PHARMACEUTICALS
  Company Number: US-APELLIS-2025-APL-0001859

PATIENT

DRUGS (3)
  1. SYFOVRE [Suspect]
     Active Substance: PEGCETACOPLAN
     Indication: Dry age-related macular degeneration
     Dosage: RIGHT EYE, WITH INTERVALS OF BETWEEN SIX TO EIGHT WEEKS.
     Route: 031
     Dates: start: 20240408
  2. SYFOVRE [Suspect]
     Active Substance: PEGCETACOPLAN
     Dosage: LEFT EYE, WITH INTERVALS OF BETWEEN SIX TO EIGHT WEEKS.
     Route: 031
     Dates: start: 20241118
  3. SYFOVRE [Suspect]
     Active Substance: PEGCETACOPLAN
     Dosage: 15MG EVERY 25 DAYS BILATERAL
     Route: 031
     Dates: start: 20240315

REACTIONS (5)
  - Vitreous floaters [Unknown]
  - Vision blurred [Unknown]
  - Vitreal cells [Unknown]
  - Eye infection [Unknown]
  - Eye inflammation [Unknown]
